FAERS Safety Report 12385541 (Version 2)
Quarter: 2016Q3

REPORT INFORMATION
  Report Type: Spontaneous
  Country: US (occurrence: US)
  Receive Date: 20160519
  Receipt Date: 20160711
  Transmission Date: 20161109
  Serious: No
  Sender: FDA-Public Use
  Company Number: US-GLAXOSMITHKLINE-US2016058848

PATIENT
  Sex: Male

DRUGS (14)
  1. TRAZODONE [Concomitant]
     Active Substance: TRAZODONE HYDROCHLORIDE
  2. TANZEUM [Suspect]
     Active Substance: ALBIGLUTIDE
     Dosage: 50 MG, WE
     Route: 042
  3. FLUTICASONE PROPIONATE. [Concomitant]
     Active Substance: FLUTICASONE PROPIONATE
  4. TERAZOSIN [Concomitant]
     Active Substance: TERAZOSIN\TERAZOSIN HYDROCHLORIDE
  5. APIDRA [Concomitant]
     Active Substance: INSULIN GLULISINE
  6. ELIQUIS [Concomitant]
     Active Substance: APIXABAN
  7. GABAPENTIN. [Concomitant]
     Active Substance: GABAPENTIN
  8. GLIMEPIRIDE. [Concomitant]
     Active Substance: GLIMEPIRIDE
  9. TANZEUM [Suspect]
     Active Substance: ALBIGLUTIDE
     Indication: DIABETES MELLITUS
     Dosage: 50 MG, WE
     Route: 042
     Dates: start: 201602
  10. LISINOPRIL. [Concomitant]
     Active Substance: LISINOPRIL
  11. OMEPRAZOLE. [Concomitant]
     Active Substance: OMEPRAZOLE
  12. TRIUMEQ [Concomitant]
     Active Substance: ABACAVIR SULFATE\DOLUTEGRAVIR SODIUM\LAMIVUDINE
  13. ATORVASTATIN [Concomitant]
     Active Substance: ATORVASTATIN
  14. CEFPODOXIME [Concomitant]
     Active Substance: CEFPODOXIME

REACTIONS (4)
  - Glycosylated haemoglobin increased [Unknown]
  - Accidental exposure to product [Unknown]
  - Underdose [Unknown]
  - Device use error [Unknown]
